FAERS Safety Report 14084794 (Version 1)
Quarter: 2017Q4

REPORT INFORMATION
  Report Type: Spontaneous
  Country: JP (occurrence: JP)
  Receive Date: 20171013
  Receipt Date: 20171013
  Transmission Date: 20180321
  Serious: Yes (Other)
  Sender: FDA-Public Use
  Company Number: JP-TEVA-816291ROM

PATIENT
  Age: 68 Year
  Sex: Female

DRUGS (1)
  1. RISEDRONATE SODIUM - BP [Suspect]
     Active Substance: RISEDRONATE SODIUM
     Indication: OSTEONECROSIS
     Route: 048

REACTIONS (4)
  - Osteonecrosis of jaw [Unknown]
  - Squamous cell carcinoma [Recovered/Resolved]
  - Apical granuloma [Unknown]
  - Resorption bone increased [Unknown]
